FAERS Safety Report 5499536-4 (Version None)
Quarter: 2007Q4

REPORT INFORMATION
  Report Type: 
  Country: None (occurrence: None)
  Receive Date: 20071026
  Receipt Date: 20071019
  Transmission Date: 20080405
  Serious: Yes (Other)
  Sender: FDA-Public Use
  Company Number: US-SHR-US-2007-017304

PATIENT
  Age: 25 Year
  Sex: Female
  Weight: 80.7 kg

DRUGS (2)
  1. MIRENA [Suspect]
     Indication: CONTRACEPTION
     Dosage: 20 A?G/DAY, CONT
     Route: 015
     Dates: start: 20060701
  2. LEVOTHYROXINE SODIUM [Concomitant]
     Dosage: 175 A?G/DAY, UNK

REACTIONS (6)
  - ABDOMINAL PAIN [None]
  - BLOOD OESTROGEN DECREASED [None]
  - FLUSHING [None]
  - GENITAL HAEMORRHAGE [None]
  - HORMONE LEVEL ABNORMAL [None]
  - PHARMACEUTICAL PRODUCT COMPLAINT [None]
